FAERS Safety Report 5294817-1 (Version None)
Quarter: 2007Q2

REPORT INFORMATION
  Report Type: 
  Country: None (occurrence: None)
  Receive Date: 20070412
  Receipt Date: 20070330
  Transmission Date: 20071010
  Serious: Yes (Hospitalization, Other)
  Sender: FDA-Public Use
  Company Number: US-JNJFOC-20070106828

PATIENT
  Sex: Female
  Weight: 73.03 kg

DRUGS (22)
  1. REMICADE [Suspect]
     Route: 042
  2. REMICADE [Suspect]
     Route: 042
  3. REMICADE [Suspect]
     Indication: CROHN'S DISEASE
     Route: 042
  4. PREDNISOLONE [Concomitant]
     Dosage: 1 GTT IN THE LEFT EYE 4 X DAY AND 1 GTT IN THE RIGHT EYE 2 X DAY
     Route: 047
  5. KETOROLAC TROMETHAMINE [Concomitant]
     Dosage: 0.4 % ONE GTT IN LEFT EYE
     Route: 047
  6. GATIFLOXACIN [Concomitant]
     Dosage: 0.4 % ONE GG IN THE LEFT EYE 4 X DAY AND ONE GTT IN THE RIGHR EYE 3 X DAY
     Route: 047
  7. ATIVAN [Concomitant]
     Route: 048
  8. TEGRETOL [Concomitant]
     Route: 048
  9. EFFEXOR XR [Concomitant]
     Route: 048
  10. WELLBUTRIN [Concomitant]
     Route: 048
  11. WELLBUTRIN [Concomitant]
     Route: 048
  12. PREVACID [Concomitant]
     Route: 048
  13. SYNTHROID [Concomitant]
     Route: 048
  14. AVANDIA [Concomitant]
     Route: 048
  15. PENTASA [Concomitant]
     Route: 048
  16. MICRO-K [Concomitant]
     Route: 048
  17. LANTUS [Concomitant]
  18. HUMALOG [Concomitant]
  19. HUMALOG [Concomitant]
  20. MULTI-VITAMIN [Concomitant]
     Route: 048
  21. BUPROPION HCL [Concomitant]
     Route: 048
  22. LOMOTIL [Concomitant]
     Dosage: 2.5/0.025 MG 2 TABLETS 3 X DAY
     Route: 048

REACTIONS (1)
  - DIVERTICULITIS [None]
